FAERS Safety Report 4843107-7 (Version None)
Quarter: 2005Q4

REPORT INFORMATION
  Report Type: 
  Country: None (occurrence: None)
  Receive Date: 20051027
  Receipt Date: 20050928
  Transmission Date: 20060501
  Serious: No
  Sender: FDA-Public Use
  Company Number: ZICO001262

PATIENT
  Age: 45 Year
  Sex: Female

DRUGS (15)
  1. PRIALT [Suspect]
     Dosage: 0.35 MCG/HR INTRATHECAL
     Route: 037
     Dates: start: 20050601, end: 20050921
  2. SEROQUEL [Concomitant]
  3. SKELAXIN [Concomitant]
  4. KLONOPIN [Concomitant]
  5. ACTIQ [Concomitant]
  6. CYMBALTA [Concomitant]
  7. RESTORIL [Concomitant]
  8. LIDODERM PATCHES (LIDOCAINE) [Concomitant]
  9. KETEK (TELEITHROMYCIN) [Concomitant]
  10. DILAUDID [Concomitant]
  11. OXYCODONE (OXYCODONE) [Concomitant]
  12. CLONIDINE [Concomitant]
  13. BACLOFEN [Concomitant]
  14. FENTANYL PATCHES (FENTANYL PATCHES) [Concomitant]
  15. DIAZEPAM [Concomitant]

REACTIONS (20)
  - ABDOMINAL DISTENSION [None]
  - ABDOMINAL PAIN UPPER [None]
  - ANXIETY [None]
  - DECREASED APPETITE [None]
  - DIARRHOEA [None]
  - DIZZINESS [None]
  - EMOTIONAL DISTRESS [None]
  - FAECAL INCONTINENCE [None]
  - HEADACHE [None]
  - HYPERHIDROSIS [None]
  - JOINT SWELLING [None]
  - MUSCLE SPASMS [None]
  - NAUSEA [None]
  - PAIN [None]
  - PAIN IN EXTREMITY [None]
  - PALPITATIONS [None]
  - PYREXIA [None]
  - SINUSITIS [None]
  - URINARY HESITATION [None]
  - VISION BLURRED [None]
